FAERS Safety Report 8208559-3 (Version None)
Quarter: 2012Q1

REPORT INFORMATION
  Report Type: 
  Country: None (occurrence: None)
  Receive Date: 20120314
  Receipt Date: 20120210
  Transmission Date: 20120608
  Serious: Yes (Hospitalization)
  Sender: FDA-Public Use
  Company Number: US-GLAXOSMITHKLINE-A0965537A

PATIENT
  Age: 38 Year
  Sex: Female

DRUGS (6)
  1. ADVAIR DISKUS 100/50 [Suspect]
     Indication: ASTHMA
     Dosage: 1PUFF TWICE PER DAY
     Route: 055
     Dates: start: 20120127
  2. SINGULAIR [Concomitant]
  3. ALBUTEROL [Suspect]
     Indication: PRODUCT USED FOR UNKNOWN INDICATION
     Dosage: 1PUFF AS REQUIRED
     Route: 055
     Dates: start: 20110101, end: 20110101
  4. ATROVENT [Concomitant]
  5. UNKNOWN DEVICE [Concomitant]
  6. FLOVENT [Suspect]
     Indication: PRODUCT USED FOR UNKNOWN INDICATION
     Route: 055
     Dates: start: 20110101, end: 20110101

REACTIONS (14)
  - ASTHENIA [None]
  - DISCOMFORT [None]
  - ANXIETY [None]
  - AGGRESSION [None]
  - DYSSTASIA [None]
  - THERAPEUTIC RESPONSE DECREASED [None]
  - DYSKINESIA [None]
  - APHASIA [None]
  - NERVOUSNESS [None]
  - FEELING DRUNK [None]
  - CIRCULATORY COLLAPSE [None]
  - FATIGUE [None]
  - DISORIENTATION [None]
  - APHONIA [None]
